FAERS Safety Report 6743756-5 (Version None)
Quarter: 2010Q2

REPORT INFORMATION
  Report Type: 
  Country: None (occurrence: None)
  Receive Date: 20100527
  Receipt Date: 20100518
  Transmission Date: 20101027
  Serious: Yes (Other)
  Sender: FDA-Public Use
  Company Number: US-SANOFI-AVENTIS-2010SA023466

PATIENT
  Age: 74 Year
  Sex: Male
  Weight: 78.9 kg

DRUGS (30)
  1. PLAVIX [Suspect]
     Indication: CORONARY ARTERY BYPASS
     Route: 048
     Dates: start: 20090301, end: 20100302
  2. PLAVIX [Suspect]
     Indication: CORONARY ANGIOPLASTY
     Route: 048
     Dates: start: 20090301, end: 20100302
  3. PLAVIX [Suspect]
     Route: 048
     Dates: start: 20090301, end: 20100302
  4. PLAVIX [Suspect]
     Route: 048
     Dates: start: 20090301
  5. PLAVIX [Suspect]
     Route: 048
     Dates: start: 20090301
  6. PLAVIX [Suspect]
     Route: 048
     Dates: start: 20090301
  7. PLAVIX [Suspect]
     Route: 048
     Dates: start: 20100402
  8. PLAVIX [Suspect]
     Route: 048
     Dates: start: 20100402
  9. PLAVIX [Suspect]
     Route: 048
     Dates: start: 20100402
  10. ASPIRIN [Concomitant]
     Dates: start: 20090301
  11. ASPIRIN [Concomitant]
     Dates: start: 20090101
  12. SOTALOL HCL [Concomitant]
     Indication: ATRIAL FIBRILLATION
  13. VALSARTAN [Concomitant]
     Indication: HYPERTENSION
  14. BUSPAR [Concomitant]
  15. ALLOPURINOL [Concomitant]
  16. SIMVASTATIN [Concomitant]
  17. ALENDRONATE [Concomitant]
     Indication: OSTEOPOROSIS
  18. ZYRTEC [Concomitant]
     Indication: SEASONAL ALLERGY
     Dosage: PRN DAILY
  19. FLUTICASONE PROPIONATE [Concomitant]
     Indication: SEASONAL ALLERGY
  20. OMEPRAZOLE [Concomitant]
     Dates: end: 20100401
  21. FINASTERIDE [Concomitant]
  22. LOSARTAN POTASSIUM [Concomitant]
  23. MULTI-VITAMINS [Concomitant]
  24. VITAMIN B COMPLEX TAB [Concomitant]
  25. FISH OIL [Concomitant]
  26. OSCAL [Concomitant]
  27. VITAMIN C [Concomitant]
  28. CHONDROITIN W/GLUCOSAMINE [Concomitant]
  29. MAGNESIUM OXIDE [Concomitant]
  30. POTASSIUM CITRATE [Concomitant]

REACTIONS (11)
  - ASTHENIA [None]
  - CORONARY ARTERY OCCLUSION [None]
  - DIVERTICULITIS [None]
  - DYSPNOEA [None]
  - FATIGUE [None]
  - GASTRITIS [None]
  - GASTRITIS EROSIVE [None]
  - HAEMOGLOBIN DECREASED [None]
  - HAEMORRHOIDS [None]
  - INBORN ERROR OF METABOLISM [None]
  - NODULE [None]
